FAERS Safety Report 20410252 (Version 1)
Quarter: 2022Q1

REPORT INFORMATION
  Report Type: Spontaneous
  Country: US (occurrence: None)
  Receive Date: 20220131
  Receipt Date: 20220131
  Transmission Date: 20220423
  Serious: Yes (Hospitalization)
  Sender: FDA-Public Use
  Company Number: None

PATIENT
  Age: 69 Year
  Sex: Male
  Weight: 110 kg

DRUGS (3)
  1. WARFARIN SODIUM [Suspect]
     Active Substance: WARFARIN SODIUM
     Indication: Atrial fibrillation
     Dosage: OTHER QUANTITY : 47.5 MG;?FREQUENCY : WEEKLY;?
     Route: 048
     Dates: start: 20100520, end: 20220122
  2. WARFARIN SODIUM [Suspect]
     Active Substance: WARFARIN SODIUM
     Indication: Anticoagulant therapy
  3. CLOPIDOGREL BISULFATE [Suspect]
     Active Substance: CLOPIDOGREL BISULFATE
     Indication: Vascular device user
     Dosage: FREQUENCY : DAILY;?
     Route: 048
     Dates: start: 20181102, end: 20220122

REACTIONS (6)
  - Epistaxis [None]
  - Haematochezia [None]
  - International normalised ratio increased [None]
  - SARS-CoV-2 test positive [None]
  - Hypophagia [None]
  - Packed red blood cell transfusion [None]

NARRATIVE: CASE EVENT DATE: 20220122
